FAERS Safety Report 18588534 (Version 1)
Quarter: 2020Q4

REPORT INFORMATION
  Report Type: Spontaneous
  Country: US (occurrence: US)
  Receive Date: 20201207
  Receipt Date: 20201207
  Transmission Date: 20210114
  Serious: Yes (Hospitalization, Other)
  Sender: FDA-Public Use
  Company Number: US-JAZZ-2014-US-002031

PATIENT
  Age: 40 Year
  Sex: Female
  Weight: 68.93 kg

DRUGS (9)
  1. CYMBALTA [Concomitant]
     Active Substance: DULOXETINE HYDROCHLORIDE
     Indication: ANXIETY
  2. CYMBALTA [Concomitant]
     Active Substance: DULOXETINE HYDROCHLORIDE
     Indication: BORDERLINE PERSONALITY DISORDER
  3. LUNESTA [Suspect]
     Active Substance: ESZOPICLONE
  4. XYREM [Suspect]
     Active Substance: SODIUM OXYBATE
     Indication: NARCOLEPSY
     Dosage: 2.25 G, BID
     Route: 048
     Dates: start: 200601, end: 2006
  5. XYREM [Suspect]
     Active Substance: SODIUM OXYBATE
     Dosage: 3.75 G, BID
     Route: 048
     Dates: start: 201405
  6. XYREM [Suspect]
     Active Substance: SODIUM OXYBATE
     Indication: CATAPLEXY
     Dosage: 4.5 G, BID
     Route: 048
     Dates: start: 200604, end: 2014
  7. CYMBALTA [Concomitant]
     Active Substance: DULOXETINE HYDROCHLORIDE
     Indication: DEPRESSION
  8. PILOCARPINE [PILOCARPINE HYDROCHLORIDE] [Suspect]
     Active Substance: PILOCARPINE HYDROCHLORIDE
     Indication: DRY MOUTH
     Dosage: 5 MG, TID
     Dates: start: 20140611
  9. PILOCARPINE [PILOCARPINE HYDROCHLORIDE] [Suspect]
     Active Substance: PILOCARPINE HYDROCHLORIDE
     Indication: DRY EYE

REACTIONS (13)
  - Inappropriate schedule of product administration [Unknown]
  - Hospitalisation [Unknown]
  - Depression [Unknown]
  - Migraine [Recovered/Resolved]
  - Mental disorder [Recovered/Resolved]
  - Head injury [Unknown]
  - Wrong technique in product usage process [Unknown]
  - Gastrooesophageal reflux disease [Recovering/Resolving]
  - Depersonalisation/derealisation disorder [Unknown]
  - Palpitations [Recovering/Resolving]
  - Blood potassium abnormal [Recovering/Resolving]
  - Cervical vertebral fracture [Not Recovered/Not Resolved]
  - Hyperhidrosis [Not Recovered/Not Resolved]

NARRATIVE: CASE EVENT DATE: 2014
